FAERS Safety Report 10077259 (Version 2)
Quarter: 2014Q2

REPORT INFORMATION
  Report Type: Spontaneous
  Country: GB (occurrence: None)
  Receive Date: 20140410
  Receipt Date: 20140519
  Transmission Date: 20141212
  Serious: Yes (Death, Life-Threatening)
  Sender: FDA-Public Use
  Company Number: 2278720

PATIENT
  Age: 69 Year
  Sex: Female

DRUGS (16)
  1. GENTAMICIN SULFATE [Suspect]
     Indication: PYELONEPHRITIS
     Route: 040
     Dates: start: 20140106, end: 20140107
  2. VANCOMYCIN HYDROCHLORIDE [Suspect]
     Indication: SEPSIS
     Dosage: VARIABLE
     Route: 041
     Dates: start: 20140108, end: 20140122
  3. CIPROFLOXACIN [Suspect]
     Indication: SEPSIS
     Route: 048
     Dates: start: 20140108, end: 20140117
  4. CLARITHROMYCIN [Suspect]
     Indication: PRODUCT USED FOR UNKNOWN INDICATION
     Route: 048
     Dates: start: 20131125, end: 20131201
  5. TRIMETHOPRIM [Suspect]
     Indication: URINARY TRACT INFECTION
     Route: 048
     Dates: start: 20131230
  6. ASPIRIN [Concomitant]
  7. CARBOCISTEINE [Concomitant]
  8. DIGOXIN [Concomitant]
  9. FERROUS SULPHATE [Concomitant]
  10. ISOSORBIDE MONONITRATE [Concomitant]
  11. METFORMIN [Concomitant]
  12. MORPHIINE [Concomitant]
  13. PIOGLITAZONE [Concomitant]
  14. SIMVASTATIN [Concomitant]
  15. TIOTROPIUM [Concomitant]
  16. TRAMADOL [Concomitant]

REACTIONS (3)
  - Clostridium difficile infection [None]
  - Sepsis [None]
  - Pyelonephritis [None]
